FAERS Safety Report 7486953-6 (Version None)
Quarter: 2011Q2

REPORT INFORMATION
  Report Type: 
  Country: None (occurrence: None)
  Receive Date: 20110517
  Receipt Date: 20110509
  Transmission Date: 20111010
  Serious: Yes (Other)
  Sender: FDA-Public Use
  Company Number: US-RB-016370-10

PATIENT
  Age: 36 Year
  Sex: Male

DRUGS (5)
  1. ABILIFY [Concomitant]
     Indication: DEPRESSION
     Route: 065
     Dates: start: 20101101
  2. LEXAPRO [Suspect]
     Indication: DEPRESSION
     Dosage: DOSING INFORMATION UNKNOWN
     Route: 048
     Dates: start: 20100901, end: 20101101
  3. SUBOXONE [Suspect]
     Indication: DRUG DEPENDENCE
     Dosage: SUBLINGUAL FILM
     Route: 060
     Dates: start: 20101101
  4. SUBOXONE [Suspect]
     Indication: DRUG DEPENDENCE
     Route: 060
     Dates: start: 20100901, end: 20101101
  5. METFORMIN HCL [Concomitant]
     Indication: DIABETES MELLITUS
     Dosage: DOSING INFORMATION UNKNOWN
     Route: 065

REACTIONS (7)
  - INSOMNIA [None]
  - SUBSTANCE ABUSE [None]
  - DRUG DEPENDENCE [None]
  - DIABETES MELLITUS [None]
  - OVERDOSE [None]
  - DRUG WITHDRAWAL SYNDROME [None]
  - SELF-INJURIOUS IDEATION [None]
